FAERS Safety Report 8012190-2 (Version None)
Quarter: 2011Q4

REPORT INFORMATION
  Report Type: 
  Country: None (occurrence: None)
  Receive Date: 20111228
  Receipt Date: 20111219
  Transmission Date: 20120403
  Serious: Yes (Hospitalization, Other)
  Sender: FDA-Public Use
  Company Number: US-ASTRAZENECA-2011SE03174

PATIENT
  Age: 48 Year
  Sex: Male
  Weight: 77.1 kg

DRUGS (10)
  1. DEPAKOTE [Concomitant]
     Indication: MIGRAINE
     Route: 065
  2. LUMESTA [Concomitant]
  3. SEROQUEL [Suspect]
     Indication: SLEEP DISORDER
     Route: 048
     Dates: start: 20060101
  4. REMERON [Concomitant]
     Route: 048
  5. SEROQUEL [Suspect]
     Indication: MOOD SWINGS
     Route: 048
     Dates: start: 20060101
  6. SEROQUEL [Suspect]
     Indication: DEPRESSION
     Route: 048
     Dates: start: 20060101
  7. SEROQUEL [Suspect]
     Indication: ANXIETY
     Route: 048
     Dates: start: 20060101
  8. AMBIEN [Concomitant]
  9. DEPAKOTE [Concomitant]
     Route: 065
  10. CELEXA [Concomitant]
     Indication: DEPRESSION
     Route: 048

REACTIONS (6)
  - SPINAL COLUMN STENOSIS [None]
  - INTERVERTEBRAL DISC PROTRUSION [None]
  - STRESS [None]
  - OFF LABEL USE [None]
  - HEADACHE [None]
  - FALL [None]
